FAERS Safety Report 13529242 (Version 1)
Quarter: 2017Q2

REPORT INFORMATION
  Report Type: Spontaneous
  Country: US (occurrence: US)
  Receive Date: 20170509
  Receipt Date: 20170509
  Transmission Date: 20170830
  Serious: No
  Sender: FDA-Public Use
  Company Number: US-INCYTE CORPORATION-2017IN003355

PATIENT

DRUGS (1)
  1. JAKAFI [Suspect]
     Active Substance: RUXOLITINIB
     Indication: WHITE BLOOD CELL COUNT INCREASED
     Dosage: 20 MG (TWO 10 MG TABLETS) QD
     Route: 048
     Dates: start: 20160715

REACTIONS (1)
  - Off label use [Unknown]
